FAERS Safety Report 8255998-0 (Version None)
Quarter: 2012Q2

REPORT INFORMATION
  Report Type: 
  Country: None (occurrence: None)
  Receive Date: 20120403
  Receipt Date: 20120326
  Transmission Date: 20120825
  Serious: No
  Sender: FDA-Public Use
  Company Number: US-PFIZER INC-2012078296

PATIENT
  Sex: Female

DRUGS (2)
  1. AMLODIPINE BESYLATE [Suspect]
     Dosage: UNK
     Dates: start: 20120116
  2. LOSARTAN POTASSIUM [Suspect]
     Dosage: UNK
     Dates: start: 20120116

REACTIONS (7)
  - FLUSHING [None]
  - MUSCLE SPASMS [None]
  - URINE COLOUR ABNORMAL [None]
  - URETHRITIS NONINFECTIVE [None]
  - DIARRHOEA [None]
  - HEADACHE [None]
  - HAEMATURIA [None]
